FAERS Safety Report 7357556-9 (Version None)
Quarter: 2011Q1

REPORT INFORMATION
  Report Type: 
  Country: None (occurrence: None)
  Receive Date: 20110317
  Receipt Date: 20110309
  Transmission Date: 20110831
  Serious: Yes (Hospitalization)
  Sender: FDA-Public Use
  Company Number: DE-ELI_LILLY_AND_COMPANY-DE201103003070

PATIENT
  Sex: Male

DRUGS (10)
  1. BYETTA [Suspect]
     Indication: DIABETES MELLITUS
     Dosage: 5 UG, 2/D
     Route: 058
     Dates: start: 20110302, end: 20110307
  2. SIMVASTATIN [Concomitant]
     Dosage: 20 MG, UNK
  3. TORASEMID [Concomitant]
     Dosage: 20 MG, UNK
  4. ASPIRIN [Concomitant]
     Dosage: 100 MG, UNK
  5. METOPROLOLSUCCINAAT SANDOZ [Concomitant]
     Dosage: UNK, 2/D
  6. SALBUTAMOL [Concomitant]
     Indication: DYSPNOEA
     Dosage: UNK, AS NEEDED
  7. PANTOPRAZOL [Concomitant]
     Indication: ABDOMINAL PAIN UPPER
     Dosage: 40 MG, UNK
  8. ATACAND [Concomitant]
     Dosage: 16 MG, UNK
  9. CLOPIDOGREL [Concomitant]
     Dosage: 75 MG, UNK
  10. XIPAMID [Concomitant]
     Dosage: UNK, EACH MORNING

REACTIONS (1)
  - BLOOD CREATININE INCREASED [None]
